FAERS Safety Report 8216538-5 (Version None)
Quarter: 2012Q1

REPORT INFORMATION
  Report Type: 
  Country: None (occurrence: None)
  Receive Date: 20120316
  Receipt Date: 20120314
  Transmission Date: 20120608
  Serious: Yes (Other)
  Sender: FDA-Public Use
  Company Number: US-PFIZER INC-2012067830

PATIENT
  Sex: Male
  Weight: 113.38 kg

DRUGS (4)
  1. LOVASTATIN [Concomitant]
     Indication: HYPERTENSION
     Dosage: UNK
  2. WARFARIN SODIUM [Suspect]
     Indication: ANTICOAGULANT THERAPY
     Dosage: 5 MG, 1X/DAY
     Route: 048
  3. CARBAMAZEPINE [Suspect]
     Indication: NEUROPATHY PERIPHERAL
     Dosage: 500 MG, 3X/DAY
     Route: 048
  4. LYRICA [Suspect]
     Indication: NEUROPATHY PERIPHERAL
     Dosage: 150 MG, UNK
     Route: 048

REACTIONS (4)
  - CEREBRAL HAEMORRHAGE [None]
  - MEMORY IMPAIRMENT [None]
  - DRUG LEVEL DECREASED [None]
  - CEREBROVASCULAR ACCIDENT [None]
